FAERS Safety Report 8609754-1 (Version None)
Quarter: 2012Q3

REPORT INFORMATION
  Report Type: 
  Country: None (occurrence: None)
  Receive Date: 20120821
  Receipt Date: 20120808
  Transmission Date: 20120928
  Serious: Yes (Other)
  Sender: FDA-Public Use
  Company Number: GB-FRI-1000037878

PATIENT
  Age: 24 Year
  Sex: Female
  Weight: 46 kg

DRUGS (4)
  1. HYDROCORTISONE [Concomitant]
     Dates: start: 20120730
  2. RIGEVIDON [Concomitant]
     Dates: start: 20120313, end: 20120717
  3. CITALOPRAM HYDROBROMIDE [Suspect]
     Route: 048
     Dates: start: 20120321
  4. PL 00173/0167 SOLEVE SUNBURN RELIEF [Concomitant]
     Dates: start: 20120725

REACTIONS (2)
  - SUNBURN [None]
  - PHOTOSENSITIVITY REACTION [None]
